FAERS Safety Report 20902907 (Version 1)
Quarter: 2022Q2

REPORT INFORMATION
  Report Type: Spontaneous
  Country: CN (occurrence: CN)
  Receive Date: 20220601
  Receipt Date: 20220601
  Transmission Date: 20220721
  Serious: Yes (Other)
  Sender: FDA-Public Use
  Company Number: CN-PFIZER INC-202200772481

PATIENT
  Age: 64 Year
  Sex: Female

DRUGS (8)
  1. IRINOTECAN HYDROCHLORIDE [Suspect]
     Active Substance: IRINOTECAN HYDROCHLORIDE
     Indication: Rectosigmoid cancer
     Dosage: 280 MG, 1X/DAY
     Route: 041
     Dates: start: 20220512, end: 20220512
  2. FLUOROURACIL [Suspect]
     Active Substance: FLUOROURACIL
     Indication: Rectosigmoid cancer
     Dosage: 4 G, 1X/DAY
     Route: 041
     Dates: start: 20220512, end: 20220512
  3. FLUOROURACIL [Suspect]
     Active Substance: FLUOROURACIL
     Dosage: 600 MG, 1X/DAY
     Route: 041
     Dates: start: 20220512, end: 20220512
  4. LEUCOVORIN CALCIUM [Suspect]
     Active Substance: LEUCOVORIN CALCIUM
     Indication: Rectosigmoid cancer
     Dosage: 600 MG, 1X/DAY
     Route: 041
     Dates: start: 20220512, end: 20220512
  5. SODIUM CHLORIDE [Concomitant]
     Active Substance: SODIUM CHLORIDE
     Indication: Vehicle solution use
     Dosage: 200 ML, 1X/DAY
     Route: 041
     Dates: start: 20220512, end: 20220512
  6. SODIUM CHLORIDE [Concomitant]
     Active Substance: SODIUM CHLORIDE
     Indication: Vehicle solution use
     Dosage: 60 ML, 1X/DAY
     Route: 041
     Dates: start: 20220512, end: 20220512
  7. DEXTROSE [Concomitant]
     Active Substance: DEXTROSE
     Indication: Vehicle solution use
     Dosage: 250 ML, 1X/DAY
     Route: 041
     Dates: start: 20220512, end: 20220512
  8. DEXTROSE [Concomitant]
     Active Substance: DEXTROSE
     Dosage: 250 ML, 1X/DAY
     Route: 041
     Dates: start: 20220512, end: 20220512

REACTIONS (4)
  - Nausea [Recovering/Resolving]
  - Vomiting [Recovering/Resolving]
  - White blood cell count decreased [Recovering/Resolving]
  - Discomfort [Recovering/Resolving]

NARRATIVE: CASE EVENT DATE: 20220516
